FAERS Safety Report 24601871 (Version 1)
Quarter: 2024Q4

REPORT INFORMATION
  Report Type: Spontaneous
  Country: PL (occurrence: PL)
  Receive Date: 20241111
  Receipt Date: 20241111
  Transmission Date: 20250115
  Serious: Yes (Other)
  Sender: AUROBINDO
  Company Number: PL-BRISTOL-MYERS SQUIBB COMPANY-2024-166219

PATIENT
  Age: 82 Year
  Sex: Male

DRUGS (4)
  1. CARBOPLATIN [Suspect]
     Active Substance: CARBOPLATIN
     Indication: Product used for unknown indication
     Dosage: UNK
     Route: 065
     Dates: start: 20240221, end: 20240430
  2. PEMETREXED [Suspect]
     Active Substance: PEMETREXED
     Indication: Product used for unknown indication
     Dosage: UNK
     Route: 065
     Dates: start: 20240221, end: 20240430
  3. NIVOLUMAB [Suspect]
     Active Substance: NIVOLUMAB
     Indication: Mesothelioma malignant
     Dosage: UNK (DOSE AND FREQUENCY: UNAVAILABLE)
     Route: 065
     Dates: start: 20230315, end: 2024
  4. IPILIMUMAB [Suspect]
     Active Substance: IPILIMUMAB
     Indication: Mesothelioma malignant
     Dosage: UNK (DOSE AND FREQUENCY: UNAVAILABLE)
     Route: 065
     Dates: start: 20230315, end: 2024

REACTIONS (2)
  - Malignant neoplasm progression [Unknown]
  - Skin toxicity [Unknown]

NARRATIVE: CASE EVENT DATE: 20240201
